FAERS Safety Report 4946430-0 (Version None)
Quarter: 2006Q1

REPORT INFORMATION
  Report Type: 
  Country: None (occurrence: None)
  Receive Date: 20060313
  Receipt Date: 20060227
  Transmission Date: 20060701
  Serious: No
  Sender: FDA-Public Use
  Company Number: 2006-139292-NL

PATIENT
  Age: 56 Year
  Sex: Female

DRUGS (13)
  1. MIRTAZAPINE [Suspect]
     Dosage: 30 MG
     Route: 048
  2. FLUDARABINE [Concomitant]
  3. MELPHALAN [Concomitant]
  4. ANTITHYMOCYTE IMMUNOGLOBULIN [Concomitant]
  5. LINEZOLID [Suspect]
     Dosage: 600 MG
     Route: 042
  6. CITALOPRAM [Suspect]
     Dosage: 40 MG/ 20 MG
     Route: 048
  7. ESOMEPRAZOLE [Suspect]
     Dosage: 40 MG
     Route: 048
  8. DEXAMETHASONE TAB [Suspect]
     Dosage: 10 MG
     Route: 042
  9. CYCLOSPORINE [Suspect]
     Dosage: 100 MG
     Route: 042
  10. VANCOMYCIN [Concomitant]
  11. CEFTAZIDIME [Concomitant]
  12. ACYCLOVIR [Concomitant]
  13. VORICONAZOLE [Concomitant]

REACTIONS (17)
  - ASPARTATE AMINOTRANSFERASE INCREASED [None]
  - ASTHENIA [None]
  - BLOOD ALKALINE PHOSPHATASE INCREASED [None]
  - BLOOD BILIRUBIN INCREASED [None]
  - BLOOD CREATINE PHOSPHOKINASE MB INCREASED [None]
  - BLOOD LACTATE DEHYDROGENASE INCREASED [None]
  - CHEST X-RAY ABNORMAL [None]
  - FEBRILE NEUTROPENIA [None]
  - HYPERTENSION [None]
  - LETHARGY [None]
  - PNEUMONIA ASPIRATION [None]
  - RESPIRATORY DISTRESS [None]
  - SEROTONIN SYNDROME [None]
  - TACHYCARDIA [None]
  - THERAPY NON-RESPONDER [None]
  - TROPONIN I INCREASED [None]
  - URINARY TRACT INFECTION ENTEROCOCCAL [None]
